APPROVED DRUG PRODUCT: YCANTH
Active Ingredient: CANTHARIDIN
Strength: 0.7%
Dosage Form/Route: SOLUTION;TOPICAL
Application: N212905 | Product #001
Applicant: VERRICA PHARMACEUTICALS INC
Approved: Jul 21, 2023 | RLD: Yes | RS: Yes | Type: RX

PATENTS:
Patent 12233042 | Expires: Aug 22, 2038
Patent 11147790 | Expires: Aug 22, 2038
Patent 11147790 | Expires: Aug 22, 2038
Patent 11052064 | Expires: May 28, 2035
Patent 11052064 | Expires: May 28, 2035
Patent 12290651 | Expires: Feb 19, 2041

EXCLUSIVITY:
Code: NCE | Date: Jul 21, 2028